FAERS Safety Report 9743149 (Version 1)
Quarter: 2013Q4

REPORT INFORMATION
  Report Type: Spontaneous
  Country: US (occurrence: US)
  Receive Date: 20131210
  Receipt Date: 20131210
  Transmission Date: 20140711
  Serious: No
  Sender: FDA-Public Use
  Company Number: US-GILEAD-2009-0024328

PATIENT
  Sex: Female
  Weight: 142.43 kg

DRUGS (10)
  1. LETAIRIS [Suspect]
     Indication: PULMONARY ARTERIAL HYPERTENSION
     Route: 048
     Dates: start: 20080808
  2. COUMADIN [Concomitant]
  3. LASIX [Concomitant]
  4. LISINOPRIL [Concomitant]
  5. CRESTOR [Concomitant]
  6. LANTUS INSULIN [Concomitant]
  7. ACTOS [Concomitant]
  8. NEXIUM [Concomitant]
  9. REGLAN [Concomitant]
  10. POTASSIUM [Concomitant]

REACTIONS (1)
  - Dyspnoea [Unknown]
